FAERS Safety Report 5258112-9 (Version None)
Quarter: 2007Q1

REPORT INFORMATION
  Report Type: 
  Country: None (occurrence: None)
  Receive Date: 20070307
  Receipt Date: 20070226
  Transmission Date: 20070707
  Serious: Yes (Other)
  Sender: FDA-Public Use
  Company Number: GB-PFIZER INC-2007011521

PATIENT
  Age: 55 Year
  Sex: Female
  Weight: 50.8 kg

DRUGS (6)
  1. CHAMPIX [Suspect]
     Indication: SMOKING CESSATION THERAPY
     Dates: start: 20070119, end: 20070208
  2. BENDROFLUAZIDE [Concomitant]
     Indication: HYPERLIPIDAEMIA
     Route: 048
  3. BENDROFLUAZIDE [Concomitant]
     Indication: HYPERTENSION
  4. CLONIDINE [Concomitant]
     Indication: HOT FLUSH
     Route: 048
  5. METFORMIN HCL [Concomitant]
     Indication: DIABETES MELLITUS NON-INSULIN-DEPENDENT
     Route: 048
  6. SIMVASTATIN [Concomitant]
     Route: 048

REACTIONS (2)
  - CHEST PAIN [None]
  - SURGERY [None]
